FAERS Safety Report 25734478 (Version 1)
Quarter: 2025Q3

REPORT INFORMATION
  Report Type: Other
  Country: US (occurrence: US)
  Receive Date: 20250828
  Receipt Date: 20250828
  Transmission Date: 20251021
  Serious: No
  Sender: ELITE
  Company Number: US-ELITEPHARMA-2025ELREG00131

PATIENT
  Sex: Female

DRUGS (1)
  1. LISDEXAMFETAMINE DIMESYLATE [Suspect]
     Active Substance: LISDEXAMFETAMINE DIMESYLATE
     Indication: Attention deficit hyperactivity disorder
     Route: 065
     Dates: start: 202505

REACTIONS (6)
  - Fatigue [Recovered/Resolved]
  - Neck pain [Recovered/Resolved]
  - Insomnia [Recovered/Resolved]
  - Therapeutic response decreased [Unknown]
  - Product substitution issue [Unknown]
  - Product quality issue [Unknown]

NARRATIVE: CASE EVENT DATE: 20250501
